FAERS Safety Report 7069533-6 (Version None)
Quarter: 2010Q4

REPORT INFORMATION
  Report Type: 
  Country: None (occurrence: None)
  Receive Date: 20101028
  Receipt Date: 20100226
  Transmission Date: 20110411
  Serious: Yes (Hospitalization)
  Sender: FDA-Public Use
  Company Number: US-WYE-H13986610

PATIENT
  Age: 66 Year
  Sex: Female

DRUGS (3)
  1. AMIODARONE [Suspect]
     Dosage: DOSE UNKNOWN
     Route: 048
     Dates: end: 20100214
  2. AMIODARONE [Suspect]
     Dosage: DOSE UNKNOWN
     Route: 048
     Dates: start: 20100201
  3. MULTAQ [Suspect]
     Route: 048
     Dates: start: 20100214

REACTIONS (1)
  - PANCREATITIS [None]
